FAERS Safety Report 10175874 (Version 2)
Quarter: 2014Q2

REPORT INFORMATION
  Report Type: Spontaneous
  Country: BR (occurrence: BR)
  Receive Date: 20140516
  Receipt Date: 20140516
  Transmission Date: 20141212
  Serious: Yes (Other)
  Sender: FDA-Public Use
  Company Number: BR-AMGEN INC.-BRASP2014017827

PATIENT
  Age: 49 Year
  Sex: Female
  Weight: 69 kg

DRUGS (7)
  1. ENBREL [Suspect]
     Indication: PSORIATIC ARTHROPATHY
     Dosage: 50 MG, ONCE WEEKLY (ON FRIDAYS)
     Route: 058
     Dates: start: 20140219, end: 20140329
  2. ENBREL [Suspect]
     Indication: RHEUMATOID ARTHRITIS
     Route: 065
  3. ALENIA                             /01538101/ [Concomitant]
     Indication: ASTHMA
     Dosage: UNK, STRENGTH 12MG
     Dates: start: 2006
  4. PREDSIM [Concomitant]
     Indication: ASTHMA
     Dosage: UNK, STRENGTH 20MG
  5. ALPRAZOLAM [Concomitant]
     Indication: ANXIETY
     Dosage: UNK, STRENGTH 0.5
  6. FLUOXETINE [Concomitant]
     Indication: ANXIETY
     Dosage: 1 DF, EVERY 12 HOURS (CYCLIC)
  7. FLUOXETINE [Concomitant]
     Dosage: 1 DF, EVERY 12 HOURS (CYCLIC)

REACTIONS (12)
  - Cyst [Unknown]
  - Dizziness [Recovered/Resolved]
  - Nausea [Unknown]
  - Fear [Not Recovered/Not Resolved]
  - Injection site mass [Unknown]
  - Injection site erythema [Unknown]
  - Injection site pruritus [Unknown]
  - Injection site recall reaction [Not Recovered/Not Resolved]
  - Injection site hypersensitivity [Unknown]
  - Injection site warmth [Recovering/Resolving]
  - Injection site pain [Unknown]
  - Injection site swelling [Unknown]
